FAERS Safety Report 15505594 (Version 2)
Quarter: 2019Q1

REPORT INFORMATION
  Report Type: Spontaneous
  Country: US (occurrence: US)
  Receive Date: 20181016
  Receipt Date: 20190211
  Transmission Date: 20190417
  Serious: No
  Sender: FDA-Public Use
  Company Number: US-SHIRE-US201839778

PATIENT
  Sex: Female

DRUGS (4)
  1. FIRAZYR [Suspect]
     Active Substance: ICATIBANT ACETATE
     Indication: PRODUCT USED FOR UNKNOWN INDICATION
     Dosage: 3 ML/30 MG, AS REQ^D
     Route: 058
     Dates: start: 20140102
  2. CINRYZE [Suspect]
     Active Substance: HUMAN C1-ESTERASE INHIBITOR
     Dosage: 1500 UNK, EVERY 3 DAYS
     Route: 042
     Dates: start: 20100702
  3. CINRYZE [Suspect]
     Active Substance: HUMAN C1-ESTERASE INHIBITOR
     Indication: PRODUCT USED FOR UNKNOWN INDICATION
     Dosage: 1000 IU, EVERY 3 DAYS
     Route: 042
     Dates: start: 20100702
  4. TAKHZYRO [Suspect]
     Active Substance: LANADELUMAB-FLYO
     Indication: PRODUCT USED FOR UNKNOWN INDICATION
     Dosage: 300 MG, 1X/2WKS
     Route: 058
     Dates: start: 20180925

REACTIONS (2)
  - Hereditary angioedema [Recovered/Resolved]
  - Prescribed overdose [Unknown]
